FAERS Safety Report 25630326 (Version 1)
Quarter: 2025Q3

REPORT INFORMATION
  Report Type: Spontaneous
  Country: CN (occurrence: CN)
  Receive Date: 20250801
  Receipt Date: 20250801
  Transmission Date: 20251021
  Serious: Yes (Other)
  Sender: ALEXION PHARMACEUTICALS
  Company Number: CN-ASTRAZENECA-202507CHN025436CN

PATIENT
  Age: 75 Year
  Sex: Female
  Weight: 58 kg

DRUGS (1)
  1. DAPAGLIFLOZIN [Suspect]
     Active Substance: DAPAGLIFLOZIN
     Indication: Diabetes mellitus
     Dosage: 10 MILLIGRAM, QD
     Dates: start: 20250717, end: 20250720

REACTIONS (6)
  - Urine ketone body present [Recovered/Resolved]
  - Nausea [Unknown]
  - Decreased appetite [Unknown]
  - White blood cells urine positive [Unknown]
  - Glucose urine present [Unknown]
  - Specific gravity urine increased [Unknown]

NARRATIVE: CASE EVENT DATE: 20250720
